FAERS Safety Report 9319904 (Version 1)
Quarter: 2013Q2

REPORT INFORMATION
  Report Type: Spontaneous
  Country: IT (occurrence: IT)
  Receive Date: 20130530
  Receipt Date: 20130530
  Transmission Date: 20140414
  Serious: Yes (Other)
  Sender: FDA-Public Use
  Company Number: IT-TEVA-408057ISR

PATIENT
  Age: 62 Year
  Sex: Male

DRUGS (5)
  1. FLUOROURACILE TEVA [Suspect]
     Indication: BREAST CANCER
     Dosage: 1 GRAM DAILY;
     Route: 042
     Dates: start: 20130124, end: 20130124
  2. FLUOXETINA [Concomitant]
  3. QUARK [Concomitant]
  4. LANSOX [Concomitant]
  5. CLODY [Concomitant]

REACTIONS (1)
  - Angioedema [Recovered/Resolved]
